FAERS Safety Report 7811150-1 (Version None)
Quarter: 2011Q4

REPORT INFORMATION
  Report Type: 
  Country: None (occurrence: None)
  Receive Date: 20111013
  Receipt Date: 20111005
  Transmission Date: 20120403
  Serious: Yes (Other)
  Sender: FDA-Public Use
  Company Number: AU-ASTELLAS-2011US006651

PATIENT
  Sex: Female
  Weight: 61 kg

DRUGS (2)
  1. PERTUZUMAB [Suspect]
     Indication: NON-SMALL CELL LUNG CANCER
     Dosage: 420 UNK, Q3W
     Route: 042
     Dates: start: 20100714
  2. ERLOTINIB HYDROCHLORIDE [Suspect]
     Indication: NON-SMALL CELL LUNG CANCER
     Dosage: 100 MG, UID/QD
     Route: 048
     Dates: start: 20100714

REACTIONS (1)
  - LEFT VENTRICULAR DYSFUNCTION [None]
